FAERS Safety Report 5154101-3 (Version None)
Quarter: 2006Q4

REPORT INFORMATION
  Report Type: 
  Country: None (occurrence: None)
  Receive Date: 20061116
  Receipt Date: 20061116
  Transmission Date: 20070319
  Serious: Yes (Hospitalization)
  Sender: FDA-Public Use
  Company Number: None

PATIENT
  Age: 75 Year
  Sex: Male
  Weight: 115.4 kg

DRUGS (21)
  1. BACTRIM [Suspect]
  2. MOMETASONE FUROATE [Concomitant]
  3. CARVEDILOL [Concomitant]
  4. FERROUS GLUCONATE [Concomitant]
  5. FORMOTEROL FUMARATE [Concomitant]
  6. FUROSEMIDE [Concomitant]
  7. IPRATROPIUM BROMIDE [Concomitant]
  8. NIFEDIPINE [Concomitant]
  9. NITROGLYCERIN [Concomitant]
  10. RANITIDINE HCL [Concomitant]
  11. SIMVASTATIN [Concomitant]
  12. INSULIN NPH HUMAN / NOVOLIN N [Concomitant]
  13. SODIUM POLYSTYRENE SULFONATE SUSP [Concomitant]
  14. DEXTROSE [Concomitant]
  15. ALBUTEROL [Concomitant]
  16. INSULIN REG HUMAN NOVOLIN R [Concomitant]
  17. ENALAPRIL TAB [Concomitant]
  18. LINEZOLID [Concomitant]
  19. CEFTRIAXONE [Concomitant]
  20. CALCIUM GLUCONATE [Concomitant]
  21. GLIPIZIDE [Concomitant]

REACTIONS (2)
  - HYPERKALAEMIA [None]
  - RENAL FAILURE [None]
